FAERS Safety Report 4975902-8 (Version None)
Quarter: 2006Q2

REPORT INFORMATION
  Report Type: 
  Country: None (occurrence: None)
  Receive Date: 20060412
  Receipt Date: 20060329
  Transmission Date: 20061013
  Serious: Yes (Hospitalization)
  Sender: FDA-Public Use
  Company Number: S06-ESP-01239-01

PATIENT
  Age: 74 Year
  Sex: Male

DRUGS (5)
  1. CITALOPRAM HYDROBROMIDE [Suspect]
     Indication: DEPRESSION
     Dosage: 20 MG QD PO
     Route: 048
     Dates: start: 20050628, end: 20050712
  2. NOREBOX (REBOXETINE) [Suspect]
     Indication: DEPRESSION
     Dosage: 4 MG QD PO
     Route: 048
     Dates: start: 20050621, end: 20050712
  3. DITROPAN [Concomitant]
  4. FLUOXETINE [Concomitant]
  5. TEMAZEPAM [Concomitant]

REACTIONS (5)
  - AGITATION [None]
  - CONFUSIONAL STATE [None]
  - GAIT DISTURBANCE [None]
  - SPEECH DISORDER [None]
  - TREMOR [None]
